FAERS Safety Report 23719924 (Version 1)
Quarter: 2024Q2

REPORT INFORMATION
  Report Type: Spontaneous
  Country: US (occurrence: US)
  Receive Date: 20240408
  Receipt Date: 20240408
  Transmission Date: 20240716
  Serious: Yes (Life-Threatening, Hospitalization, Other)
  Sender: FDA-Public Use
  Company Number: None

PATIENT
  Age: 62 Year
  Sex: Female

DRUGS (13)
  1. FLUCONAZOLE [Suspect]
     Active Substance: FLUCONAZOLE
     Indication: Oropharyngeal candidiasis
  2. SULFAMETHOXAZOLE\TRIMETHOPRIM [Suspect]
     Active Substance: SULFAMETHOXAZOLE\TRIMETHOPRIM
     Indication: Antifungal prophylaxis
  3. SCOPOLAMINE [Suspect]
     Active Substance: SCOPOLAMINE
     Indication: Nausea
     Route: 062
  4. MONTELUKAST [Concomitant]
     Active Substance: MONTELUKAST SODIUM
  5. LEVOFLOXACIN [Concomitant]
     Active Substance: LEVOFLOXACIN
     Indication: Pneumonia
  6. ALBUTEROL, IPRATROPIUM [Concomitant]
  7. POLYETHYLENE GLYCOL [Concomitant]
     Active Substance: POLYETHYLENE GLYCOL
  8. BICTEGRAVIR, EMTRICITABINE, TENOFOVIR [Concomitant]
  9. SENNOSIDES [Concomitant]
     Active Substance: SENNOSIDES
  10. HEPARIN [Concomitant]
     Active Substance: HEPARIN SODIUM
     Route: 058
  11. PREGABALIN [Concomitant]
     Active Substance: PREGABALIN
  12. BUDESONIDE [Concomitant]
     Active Substance: BUDESONIDE
  13. GUAIFENESIN [Concomitant]
     Active Substance: GUAIFENESIN

REACTIONS (3)
  - Drug interaction [Recovered/Resolved]
  - Supraventricular tachycardia [Recovered/Resolved]
  - Haemodynamic instability [Recovered/Resolved]
